FAERS Safety Report 24445147 (Version 1)
Quarter: 2024Q4

REPORT INFORMATION
  Report Type: Spontaneous
  Country: US (occurrence: US)
  Receive Date: 20241016
  Receipt Date: 20241016
  Transmission Date: 20250114
  Serious: No
  Sender: AMGEN
  Company Number: US-AMGEN-USASP2024203260

PATIENT
  Age: 24 Year
  Sex: Female

DRUGS (4)
  1. ADALIMUMAB [Suspect]
     Active Substance: ADALIMUMAB
     Indication: Psoriasis
     Dosage: UNK
     Route: 065
  2. Immunoglobulin [Concomitant]
     Route: 040
  3. SECUKINUMAB [Concomitant]
     Active Substance: SECUKINUMAB
  4. DUPILUMAB [Concomitant]
     Active Substance: DUPILUMAB

REACTIONS (3)
  - Acanthosis [Unknown]
  - Parakeratosis [Unknown]
  - Superficial inflammatory dermatosis [Unknown]
